FAERS Safety Report 5061888-7 (Version None)
Quarter: 2006Q3

REPORT INFORMATION
  Report Type: 
  Country: None (occurrence: None)
  Receive Date: 20060726
  Receipt Date: 20060718
  Transmission Date: 20061208
  Serious: Yes (Other)
  Sender: FDA-Public Use
  Company Number: PHFR2006GB02267

PATIENT
  Age: 45 Year
  Sex: Male

DRUGS (2)
  1. CLOZARIL [Suspect]
     Indication: SCHIZOPHRENIA
     Route: 048
     Dates: start: 20050624
  2. CLOZARIL [Suspect]
     Dosage: 325 MG/DAY
     Route: 048

REACTIONS (5)
  - CONSTIPATION [None]
  - DRUG LEVEL ABOVE THERAPEUTIC [None]
  - FATIGUE [None]
  - SALIVARY HYPERSECRETION [None]
  - SLEEP APNOEA SYNDROME [None]
